FAERS Safety Report 9474009 (Version 1)
Quarter: 2013Q3

REPORT INFORMATION
  Report Type: Spontaneous
  Country: US (occurrence: US)
  Receive Date: 20130823
  Receipt Date: 20130823
  Transmission Date: 20140515
  Serious: Yes (Death, Life-Threatening, Other)
  Sender: FDA-Public Use
  Company Number: US-VERTEX PHARMACEUTICALS INC-2013-008969

PATIENT
  Age: 60 Year
  Sex: Male

DRUGS (3)
  1. INCIVEK [Suspect]
     Indication: HEPATITIS C
     Dosage: UNK
     Route: 048
     Dates: start: 20130808, end: 20130821
  2. RIBAVIRIN [Suspect]
     Indication: HEPATITIS C
     Dosage: UNK
     Dates: start: 201307, end: 20130821
  3. PEGYLATED INTERFERON ALFA-2A [Suspect]
     Indication: HEPATITIS C
     Dosage: UNK
     Dates: start: 201307, end: 20130821

REACTIONS (4)
  - Death [Fatal]
  - Unresponsive to stimuli [Fatal]
  - Chest pain [Recovered/Resolved]
  - Blood glucose increased [Unknown]
